FAERS Safety Report 19803825 (Version 3)
Quarter: 2021Q3

REPORT INFORMATION
  Report Type: Report from Study
  Country: HU (occurrence: HU)
  Receive Date: 20210908
  Receipt Date: 20210930
  Transmission Date: 20211014
  Serious: Yes (Hospitalization, Other)
  Sender: FDA-Public Use
  Company Number: NVSC2021HU199180

PATIENT
  Age: 60 Year
  Sex: Female
  Weight: 59 kg

DRUGS (1)
  1. BYL719 [Suspect]
     Active Substance: ALPELISIB
     Indication: ENDOMETRIAL CANCER METASTATIC
     Dosage: 300 MG
     Route: 048
     Dates: start: 20210811, end: 20210830

REACTIONS (10)
  - Metastases to liver [Unknown]
  - Generalised oedema [Unknown]
  - Peripheral swelling [Unknown]
  - Blood glucose increased [Unknown]
  - Fibrin D dimer increased [Unknown]
  - Lymphocyte count increased [Unknown]
  - Deep vein thrombosis [Unknown]
  - Weight increased [Unknown]
  - Red blood cell sedimentation rate increased [Unknown]
  - Blood creatinine increased [Unknown]

NARRATIVE: CASE EVENT DATE: 20210830
